FAERS Safety Report 9780802 (Version 3)
Quarter: 2016Q3

REPORT INFORMATION
  Report Type: Spontaneous
  Country: SE (occurrence: SE)
  Receive Date: 20131224
  Receipt Date: 20160705
  Transmission Date: 20161109
  Serious: Yes (Life-Threatening, Hospitalization)
  Sender: FDA-Public Use
  Company Number: SE-SA-2013SA132194

PATIENT
  Age: 68 Year
  Sex: Male

DRUGS (10)
  1. ANDROCUR [Concomitant]
     Active Substance: CYPROTERONE ACETATE
  2. OMEPRAZOLE. [Concomitant]
     Active Substance: OMEPRAZOLE
  3. LOPERAMIDE [Concomitant]
     Active Substance: LOPERAMIDE
  4. FURIX [Concomitant]
     Active Substance: FUROSEMIDE
  5. PRIMPERAN [Concomitant]
     Active Substance: METOCLOPRAMIDE HYDROCHLORIDE
  6. JEVTANA [Suspect]
     Active Substance: CABAZITAXEL
     Indication: PROSTATE CANCER
     Route: 065
     Dates: start: 20130807, end: 20131111
  7. INNOHEP [Concomitant]
     Active Substance: TINZAPARIN SODIUM
  8. SODIUM PICOSULFATE [Concomitant]
     Active Substance: SODIUM PICOSULFATE
  9. PREDNISOLONE. [Concomitant]
     Active Substance: PREDNISOLONE
  10. CAVERJECT [Concomitant]
     Active Substance: ALPROSTADIL

REACTIONS (3)
  - Disseminated intravascular coagulation [Recovered/Resolved]
  - Thrombotic thrombocytopenic purpura [Recovered/Resolved]
  - Haematuria [Recovered/Resolved]

NARRATIVE: CASE EVENT DATE: 20131202
